FAERS Safety Report 9422143 (Version 4)
Quarter: 2013Q4

REPORT INFORMATION
  Report Type: Spontaneous
  Country: US (occurrence: US)
  Receive Date: 20130726
  Receipt Date: 20131030
  Transmission Date: 20140711
  Serious: Yes (Other)
  Sender: FDA-Public Use
  Company Number: US-JNJFOC-20130709269

PATIENT
  Age: 79 Year
  Sex: Male
  Weight: 81.65 kg

DRUGS (8)
  1. ZYTIGA [Suspect]
     Indication: PROSTATE CANCER
     Dosage: 250 MG TABLETS X 4; STARTED ON 18 TH OR 19 TH OF APR-2013
     Route: 048
     Dates: start: 201304
  2. PREDNISONE [Suspect]
     Indication: ASTHENIA
     Route: 048
     Dates: start: 201304, end: 20130630
  3. PREDNISONE [Suspect]
     Indication: ASTHENIA
     Route: 048
     Dates: start: 20130701, end: 201309
  4. PREDNISONE [Suspect]
     Indication: PROSTATE CANCER
     Route: 048
     Dates: start: 20130701, end: 201309
  5. PREDNISONE [Suspect]
     Indication: PROSTATE CANCER
     Route: 048
     Dates: start: 201304, end: 20130630
  6. EXFORGE [Concomitant]
     Indication: BLOOD PRESSURE
     Route: 065
  7. HYDRALAZINE [Concomitant]
     Indication: BLOOD PRESSURE
     Route: 065
  8. WARFARIN [Concomitant]
     Indication: ANTICOAGULANT THERAPY
     Route: 065

REACTIONS (9)
  - Dehydration [Recovered/Resolved]
  - Dysstasia [Recovered/Resolved]
  - Therapeutic response unexpected [Unknown]
  - Prostatic specific antigen increased [Not Recovered/Not Resolved]
  - Pain in extremity [Not Recovered/Not Resolved]
  - Contusion [Not Recovered/Not Resolved]
  - Asthenia [Recovered/Resolved]
  - Urinary tract infection [Recovered/Resolved]
  - Abdominal discomfort [Recovered/Resolved]
